FAERS Safety Report 6097547-1 (Version None)
Quarter: 2009Q1

REPORT INFORMATION
  Report Type: 
  Country: None (occurrence: None)
  Receive Date: 20090227
  Receipt Date: 20081015
  Transmission Date: 20090719
  Serious: No
  Sender: FDA-Public Use
  Company Number: A0752834A

PATIENT
  Sex: Female

DRUGS (5)
  1. IMITREX [Suspect]
     Indication: MIGRAINE
     Route: 065
  2. PAIN RELIEVER [Concomitant]
  3. CODEINE [Concomitant]
  4. XANAX [Concomitant]
  5. BUTALBITAL [Concomitant]

REACTIONS (2)
  - MEMORY IMPAIRMENT [None]
  - MIGRAINE [None]
